FAERS Safety Report 23118912 (Version 1)
Quarter: 2023Q4

REPORT INFORMATION
  Report Type: Spontaneous
  Country: CN (occurrence: None)
  Receive Date: 20231028
  Receipt Date: 20231028
  Transmission Date: 20240110
  Serious: Yes (Other)
  Sender: FDA-Public Use
  Company Number: CN-ROCHE-3447683

PATIENT
  Age: 43 Year
  Sex: Female
  Weight: 64 kg

DRUGS (2)
  1. MABTHERA [Suspect]
     Active Substance: RITUXIMAB
     Indication: Myasthenia gravis
     Dosage: INJECTION, ON THE SAME DAY RECEIVED INTRAVENOUSLY RITUXIMAB 300 MG ONCE A DAY .
     Route: 041
     Dates: start: 20231018
  2. SODIUM CHLORIDE [Concomitant]
     Active Substance: SODIUM CHLORIDE
     Dosage: SUBSEQUENT DOSE OF SODIUM CHLORIDE INJECTION 500 ML ONCE A DAY WAS RECEIVED.
     Route: 041
     Dates: start: 20231018

REACTIONS (2)
  - Liver injury [Unknown]
  - Off label use [Unknown]

NARRATIVE: CASE EVENT DATE: 20231020
